FAERS Safety Report 13676348 (Version 1)
Quarter: 2017Q2

REPORT INFORMATION
  Report Type: Report from Study
  Country: CA (occurrence: CA)
  Receive Date: 20170622
  Receipt Date: 20170622
  Transmission Date: 20170830
  Serious: Yes (Other)
  Sender: FDA-Public Use
  Company Number: CA-BRISTOL-MYERS SQUIBB COMPANY-BMS-2017-054698

PATIENT
  Age: 62 Year
  Sex: Female

DRUGS (1)
  1. ABATACEPT [Suspect]
     Active Substance: ABATACEPT
     Indication: RHEUMATOID ARTHRITIS
     Dosage: 125 MG, QD
     Route: 058
     Dates: start: 20160901

REACTIONS (7)
  - Arthralgia [Unknown]
  - Injection site haemorrhage [Unknown]
  - Arthritis [Unknown]
  - Abasia [Unknown]
  - Urinary tract infection [Unknown]
  - Sinusitis [Unknown]
  - Injection site mass [Unknown]

NARRATIVE: CASE EVENT DATE: 20170224
